FAERS Safety Report 20585819 (Version 1)
Quarter: 2022Q1

REPORT INFORMATION
  Report Type: Spontaneous
  Country: FR (occurrence: FR)
  Receive Date: 20220312
  Receipt Date: 20220312
  Transmission Date: 20220423
  Serious: Yes (Other)
  Sender: FDA-Public Use
  Company Number: FR-AMGEN-FRASP2022038705

PATIENT
  Sex: Female

DRUGS (2)
  1. TRASTUZUMAB [Suspect]
     Active Substance: TRASTUZUMAB
     Indication: HER2 positive breast cancer
     Route: 058
  2. PERTUZUMAB [Concomitant]
     Active Substance: PERTUZUMAB
     Indication: HER2 positive breast cancer
     Dosage: UNK
     Route: 042

REACTIONS (9)
  - Neurotoxicity [Unknown]
  - Adverse event [Unknown]
  - Skin disorder [Unknown]
  - Off label use [Unknown]
  - Incorrect route of product administration [Unknown]
  - Asthenia [Unknown]
  - Diarrhoea [Unknown]
  - Pain [Unknown]
  - Nausea [Unknown]
